FAERS Safety Report 7775864-4 (Version None)
Quarter: 2011Q3

REPORT INFORMATION
  Report Type: 
  Country: None (occurrence: None)
  Receive Date: 20110923
  Receipt Date: 20110908
  Transmission Date: 20111222
  Serious: Yes (Death, Hospitalization)
  Sender: FDA-Public Use
  Company Number: GB-WATSON-2011-15196

PATIENT
  Age: 24 Year
  Sex: Male

DRUGS (6)
  1. FERROUS SULFATE TAB [Suspect]
     Indication: SUICIDE ATTEMPT
     Dosage: POSSIBLY MORE THAN 6 G
     Route: 048
  2. ACETAMINOPHEN [Suspect]
     Indication: SUICIDE ATTEMPT
     Dosage: 50 G, SINGLE (100 TABLETS)
  3. KETAMINE HCL [Suspect]
     Indication: SUICIDE ATTEMPT
     Dosage: UNK
  4. ACETAMINOPHEN [Suspect]
     Indication: SUICIDE ATTEMPT
     Dosage: 50 G, SINGLE
  5. ASPIRIN [Suspect]
     Indication: SUICIDE ATTEMPT
     Dosage: UNK
  6. IBUPROFEN [Suspect]
     Indication: SUICIDE ATTEMPT
     Dosage: UNK

REACTIONS (6)
  - OVERDOSE [None]
  - BRAIN STEM SYNDROME [None]
  - CHOLESTASIS [None]
  - ASPERGILLOSIS [None]
  - HEPATIC STEATOSIS [None]
  - DRUG INTERACTION [None]
